FAERS Safety Report 15011973 (Version 1)
Quarter: 2018Q2

REPORT INFORMATION
  Report Type: Spontaneous
  Country: US (occurrence: US)
  Receive Date: 20180529
  Receipt Date: 20180529
  Transmission Date: 20180711
  Serious: Yes (Death)
  Sender: FDA-Public Use
  Company Number: None

PATIENT
  Age: 13 Year
  Sex: Male
  Weight: 36.45 kg

DRUGS (7)
  1. HYDROXYUREA. [Concomitant]
     Active Substance: HYDROXYUREA
  2. MEGESTROL [Concomitant]
     Active Substance: MEGESTROL
  3. LYSTEDA [Concomitant]
     Active Substance: TRANEXAMIC ACID
  4. VORICONAZOLE. [Concomitant]
     Active Substance: VORICONAZOLE
  5. FARYDAK [Suspect]
     Active Substance: PANOBINOSTAT
     Indication: ACUTE LYMPHOCYTIC LEUKAEMIA
     Route: 048
     Dates: start: 20180417, end: 20180529
  6. CIPROFLOXACIN. [Concomitant]
     Active Substance: CIPROFLOXACIN
  7. BACTRIM [Concomitant]
     Active Substance: SULFAMETHOXAZOLE\TRIMETHOPRIM

REACTIONS (1)
  - Death [None]
